FAERS Safety Report 9208888 (Version 2)
Quarter: 2013Q2

REPORT INFORMATION
  Report Type: Spontaneous
  Country: US (occurrence: US)
  Receive Date: 20130404
  Receipt Date: 20130528
  Transmission Date: 20140414
  Serious: Yes (Other)
  Sender: FDA-Public Use
  Company Number: US-JNJFOC-20130319058

PATIENT
  Sex: Male
  Weight: 61.24 kg

DRUGS (4)
  1. BENADRYL [Suspect]
     Indication: EUPHORIC MOOD
     Dosage: (20-30 TABS/CAPS/GELS) 15-30 PILL EACH DAY) APPROXIMATELY 6-8 MONTHS
     Route: 048
     Dates: start: 20120701, end: 20120901
  2. MARIJUANA [Suspect]
     Indication: EUPHORIC MOOD
     Route: 065
  3. COCAINE [Suspect]
     Indication: EUPHORIC MOOD
     Route: 065
  4. MAITAKE MUSHROOM [Suspect]
     Indication: EUPHORIC MOOD
     Route: 065

REACTIONS (4)
  - Drug abuse [Recovered/Resolved]
  - Adverse drug reaction [Recovered/Resolved]
  - Overdose [Recovered/Resolved]
  - Off label use [Unknown]
